FAERS Safety Report 23986897 (Version 1)
Quarter: 2024Q2

REPORT INFORMATION
  Report Type: Spontaneous
  Country: US (occurrence: US)
  Receive Date: 20240618
  Receipt Date: 20240618
  Transmission Date: 20240715
  Serious: No
  Sender: FDA-Public Use
  Company Number: US-MYLANLABS-2024M1053797

PATIENT
  Age: 83 Year
  Sex: Female

DRUGS (1)
  1. SILDENAFIL [Suspect]
     Active Substance: SILDENAFIL
     Indication: Pulmonary hypertension
     Dosage: 20 MILLIGRAM, TID
     Route: 065
     Dates: start: 20230717

REACTIONS (1)
  - Lipomatosis [Not Recovered/Not Resolved]

NARRATIVE: CASE EVENT DATE: 20231002
